FAERS Safety Report 9015446 (Version 2)
Quarter: 2013Q1

REPORT INFORMATION
  Report Type: Report from Study
  Country: US (occurrence: US)
  Receive Date: 20130116
  Receipt Date: 20130124
  Transmission Date: 20140127
  Serious: Yes (Hospitalization, Other)
  Sender: FDA-Public Use
  Company Number: US-PURDUE-USA-2013-0097615

PATIENT
  Age: 63 Year
  Sex: Male

DRUGS (2)
  1. OXYCONTIN (NDA 22-272) [Suspect]
     Indication: NEOPLASM MALIGNANT
     Dosage: 40 MG, BID
     Route: 048
     Dates: start: 201208
  2. OXYCONTIN (NDA 22-272) [Suspect]
     Dosage: 160 MG, BID
     Route: 048

REACTIONS (4)
  - Adrenal cyst [Unknown]
  - Non-small cell lung cancer [Unknown]
  - Pain [Unknown]
  - Grand mal convulsion [Unknown]
